FAERS Safety Report 8418514-6 (Version None)
Quarter: 2012Q2

REPORT INFORMATION
  Report Type: 
  Country: None (occurrence: None)
  Receive Date: 20120607
  Receipt Date: 20120530
  Transmission Date: 20120825
  Serious: Yes (Death, Hospitalization)
  Sender: FDA-Public Use
  Company Number: JP-CELGENEUS-087-50794-11113104

PATIENT
  Sex: Male
  Weight: 65 kg

DRUGS (17)
  1. ITRACONAZOLE [Concomitant]
     Route: 065
     Dates: start: 20110704
  2. FOSMICIN-S [Concomitant]
     Route: 065
     Dates: start: 20111114, end: 20111115
  3. NEUTROGIN [Concomitant]
     Route: 065
     Dates: start: 20110930, end: 20111007
  4. MEROPENEM [Concomitant]
     Route: 065
     Dates: start: 20110928, end: 20111007
  5. NEUTROGIN [Concomitant]
     Route: 065
     Dates: start: 20111110, end: 20111114
  6. VANCOMYCIN HYDROCHLORIDE [Concomitant]
     Dosage: 2 GRAM
     Route: 065
     Dates: start: 20111111, end: 20111115
  7. TAMSULOSIN HCL [Concomitant]
     Route: 065
  8. NISSEKI POLYGLOBIN-N [Concomitant]
     Route: 065
     Dates: start: 20111114, end: 20111114
  9. MEROPENEM [Concomitant]
     Route: 065
     Dates: start: 20111110, end: 20111115
  10. EVIPROSTAT [Concomitant]
     Route: 065
  11. VIDAZA [Suspect]
     Indication: MYELODYSPLASTIC SYNDROME
     Dosage: 59.1 MILLIGRAM
     Route: 058
     Dates: start: 20110829, end: 20110902
  12. VIDAZA [Suspect]
     Dosage: 58.3 MILLIGRAM/SQ. METER
     Route: 058
     Dates: start: 20111024, end: 20111028
  13. EXJADE [Concomitant]
     Route: 065
     Dates: start: 20110425
  14. LEVOFLOXACIN [Concomitant]
     Route: 065
     Dates: start: 20110704
  15. MAGMITT [Concomitant]
     Route: 065
  16. RAMELTEON [Concomitant]
     Route: 065
     Dates: start: 20110829
  17. GLAKAY [Concomitant]
     Route: 065

REACTIONS (2)
  - FEBRILE NEUTROPENIA [None]
  - PNEUMONIA [None]
